FAERS Safety Report 23189887 (Version 1)
Quarter: 2023Q4

REPORT INFORMATION
  Report Type: Spontaneous
  Country: US (occurrence: US)
  Receive Date: 20231116
  Receipt Date: 20231116
  Transmission Date: 20240110
  Serious: No
  Sender: FDA-Public Use
  Company Number: US-SA-SAC20230728000519

PATIENT
  Sex: Male

DRUGS (9)
  1. DUPIXENT [Suspect]
     Active Substance: DUPILUMAB
     Indication: Nasal polyps
     Dosage: 300 MG, QOW
     Route: 058
     Dates: start: 20230627
  2. CLARITIN-D NOS [Concomitant]
     Active Substance: LORATADINE\PSEUDOEPHEDRINE SULFATE
  3. ESCITALOPRAM [Concomitant]
     Active Substance: ESCITALOPRAM OXALATE
  4. FLONASE [Concomitant]
     Active Substance: FLUTICASONE PROPIONATE
  5. MONTELUKAST [Concomitant]
     Active Substance: MONTELUKAST SODIUM
  6. VITAMIN D3 [Concomitant]
     Active Substance: CHOLECALCIFEROL
  7. CLARITHROMYCIN [Concomitant]
     Active Substance: CLARITHROMYCIN
  8. CYCLOBENZAPRINE [Concomitant]
     Active Substance: CYCLOBENZAPRINE
  9. METHOCARBAMOL [Concomitant]
     Active Substance: METHOCARBAMOL

REACTIONS (1)
  - Drug ineffective [Unknown]

NARRATIVE: CASE EVENT DATE: 20230101
